FAERS Safety Report 6223202-0 (Version None)
Quarter: 2009Q2

REPORT INFORMATION
  Report Type: 
  Country: None (occurrence: None)
  Receive Date: 20090609
  Receipt Date: 20090603
  Transmission Date: 20091009
  Serious: Yes (Hospitalization)
  Sender: FDA-Public Use
  Company Number: 2009SP012182

PATIENT
  Age: 69 Year
  Sex: Male

DRUGS (4)
  1. VIRAFERONPEG [Suspect]
     Indication: HEPATITIS C
     Dosage: ; SC
     Route: 058
     Dates: start: 20090401, end: 20090420
  2. REBETOL [Suspect]
     Indication: HEPATITIS C
     Dosage: 1200 MG; QD; PO
     Route: 048
     Dates: start: 20090401, end: 20090420
  3. LITHIUM CARBONATE [Suspect]
     Indication: BIPOLAR DISORDER
     Dosage: 1250 MG; QD; PO
     Route: 048
     Dates: start: 19970101, end: 20090423
  4. DEPAMIDE [Concomitant]

REACTIONS (4)
  - CEREBELLAR SYNDROME [None]
  - CONFUSIONAL STATE [None]
  - NEUROLOGICAL SYMPTOM [None]
  - THERAPEUTIC AGENT TOXICITY [None]
